FAERS Safety Report 4546637-0 (Version None)
Quarter: 2005Q1

REPORT INFORMATION
  Report Type: 
  Country: None (occurrence: None)
  Receive Date: 20050103
  Receipt Date: 20041220
  Transmission Date: 20050727
  Serious: Yes (Death, Other)
  Sender: FDA-Public Use
  Company Number: US_0411108042

PATIENT
  Age: 71 Year
  Sex: Male

DRUGS (5)
  1. GEMCITABINE HYDROCHLORIDE-IV (GEMCITABINE) [Suspect]
     Indication: ADENOSQUAMOUS CELL LUNG CANCER STAGE IV
     Dosage: 1000 MG/M2; OTHER
     Route: 050
  2. CISPLATIN [Concomitant]
  3. ONDANSETRON [Concomitant]
  4. PREDNISOLONE [Concomitant]
  5. METOCLOPRAMIDE [Concomitant]

REACTIONS (5)
  - APHASIA [None]
  - CONFUSIONAL STATE [None]
  - INFUSION RELATED REACTION [None]
  - MALIGNANT NEOPLASM PROGRESSION [None]
  - MYOCLONIC EPILEPSY [None]
